FAERS Safety Report 25707573 (Version 1)
Quarter: 2025Q3

REPORT INFORMATION
  Report Type: Spontaneous
  Country: TR (occurrence: TR)
  Receive Date: 20250820
  Receipt Date: 20250820
  Transmission Date: 20251020
  Serious: Yes (Life-Threatening, Hospitalization)
  Sender: GALPHARM INTERNATIONAL
  Company Number: TR-MLMSERVICE-20250804-PI601714-00191-1

PATIENT
  Age: 22 Year
  Sex: Male

DRUGS (1)
  1. LANSOPRAZOLE [Suspect]
     Active Substance: LANSOPRAZOLE
     Indication: Product used for unknown indication
     Route: 042

REACTIONS (6)
  - Septic shock [Recovering/Resolving]
  - Metabolic acidosis [Recovering/Resolving]
  - Acute kidney injury [Recovering/Resolving]
  - Intentional self-injury [Recovering/Resolving]
  - Wrong technique in product usage process [Recovering/Resolving]
  - Wrong technique in product usage process [Recovering/Resolving]
